FAERS Safety Report 7280809-X (Version None)
Quarter: 2011Q1

REPORT INFORMATION
  Report Type: 
  Country: None (occurrence: None)
  Receive Date: 20110208
  Receipt Date: 20110112
  Transmission Date: 20110831
  Serious: Yes (Disabling)
  Sender: FDA-Public Use
  Company Number: DE-BRISTOL-MYERS SQUIBB COMPANY-15498140

PATIENT
  Age: 66 Year
  Sex: Female

DRUGS (2)
  1. AMLODIPINE [Concomitant]
     Indication: HYPERTENSION
     Dates: start: 20080301
  2. COAPROVEL FILM-COATED TABS [Suspect]
     Indication: HYPERTENSION
     Route: 048

REACTIONS (1)
  - LEUKOPLAKIA [None]
